FAERS Safety Report 14747851 (Version 2)
Quarter: 2019Q1

REPORT INFORMATION
  Report Type: Spontaneous
  Country: US (occurrence: US)
  Receive Date: 20180411
  Receipt Date: 20190322
  Transmission Date: 20190417
  Serious: No
  Sender: FDA-Public Use
  Company Number: US-ENDO PHARMACEUTICALS INC-2018-014152

PATIENT
  Sex: Male

DRUGS (1)
  1. AVEED [Suspect]
     Active Substance: TESTOSTERONE UNDECANOATE
     Indication: TESTICULAR FAILURE
     Dosage: 2 ML, INJECTED AS DIRECTED
     Route: 065
     Dates: start: 2017

REACTIONS (4)
  - Somnolence [Unknown]
  - Blood testosterone decreased [Unknown]
  - Fatigue [Unknown]
  - Drug ineffective [Unknown]
